FAERS Safety Report 12893148 (Version 1)
Quarter: 2016Q4

REPORT INFORMATION
  Report Type: Spontaneous
  Country: US (occurrence: US)
  Receive Date: 20161025
  Receipt Date: 20161025
  Transmission Date: 20170207
  Serious: Yes (Hospitalization)
  Sender: FDA-Public Use
  Company Number: None

PATIENT
  Age: 75 Year
  Sex: Male
  Weight: 63.5 kg

DRUGS (1)
  1. PIPERACILLIN/TAZOBACTAM [Suspect]
     Active Substance: PIPERACILLIN SODIUM\TAZOBACTAM SODIUM
     Indication: INFECTION
     Route: 042
     Dates: start: 20160616, end: 20160622

REACTIONS (9)
  - Hypotension [None]
  - Multiple organ dysfunction syndrome [None]
  - Pneumonia [None]
  - Clostridium difficile colitis [None]
  - Anaemia [None]
  - Urinary tract infection [None]
  - Sepsis [None]
  - Bacteraemia [None]
  - Hypoxia [None]

NARRATIVE: CASE EVENT DATE: 20160806
